FAERS Safety Report 22349173 (Version 1)
Quarter: 2023Q2

REPORT INFORMATION
  Report Type: Spontaneous
  Country: US (occurrence: None)
  Receive Date: 20230519
  Receipt Date: 20230519
  Transmission Date: 20230722
  Serious: Yes (Death)
  Sender: FDA-Public Use
  Company Number: None

PATIENT
  Age: 82 Year

DRUGS (1)
  1. CAPECITABINE [Suspect]
     Active Substance: CAPECITABINE
     Indication: Cholangiocarcinoma
     Dosage: FREQUENCY : TWICE A DAY;124 DAYS ON ?
     Route: 048
     Dates: start: 20230305, end: 20230519

REACTIONS (1)
  - Death [None]

NARRATIVE: CASE EVENT DATE: 20230519
